FAERS Safety Report 7251828-4 (Version None)
Quarter: 2011Q1

REPORT INFORMATION
  Report Type: 
  Country: None (occurrence: None)
  Receive Date: 20110128
  Receipt Date: 20100108
  Transmission Date: 20110831
  Serious: No
  Sender: FDA-Public Use
  Company Number: US-ABBOTT-10P-163-0618193-00

PATIENT
  Age: 63 Year
  Sex: Male
  Weight: 80.812 kg

DRUGS (1)
  1. HUMIRA [Suspect]
     Indication: PRODUCT USED FOR UNKNOWN INDICATION
     Dates: start: 20100102, end: 20100102

REACTIONS (3)
  - WRONG DRUG ADMINISTERED [None]
  - INJURY ASSOCIATED WITH DEVICE [None]
  - BLOOD PRESSURE INCREASED [None]
